FAERS Safety Report 17190664 (Version 1)
Quarter: 2019Q4

REPORT INFORMATION
  Report Type: Spontaneous
  Country: US (occurrence: US)
  Receive Date: 20191202
  Receipt Date: 20191202
  Transmission Date: 20200122
  Serious: No
  Sender: FDA-Public Use
  Company Number: None

PATIENT
  Age: 72 Year
  Sex: Male

DRUGS (1)
  1. ERLEADA [Suspect]
     Active Substance: APALUTAMIDE
     Indication: PROSTATE CANCER
     Route: 048
     Dates: start: 201908

REACTIONS (4)
  - Malaise [None]
  - Abdominal discomfort [None]
  - Gastric ulcer [None]
  - Neoplasm skin [None]

NARRATIVE: CASE EVENT DATE: 20191112
